FAERS Safety Report 7553827-1 (Version None)
Quarter: 2011Q2

REPORT INFORMATION
  Report Type: 
  Country: None (occurrence: None)
  Receive Date: 20110609
  Receipt Date: 20110526
  Transmission Date: 20111010
  Serious: Yes (Hospitalization)
  Sender: FDA-Public Use
  Company Number: 1000021418

PATIENT
  Age: 20 Year
  Sex: Female
  Weight: 50 kg

DRUGS (4)
  1. JANUMET [Suspect]
     Dosage: (180 DOSAGE FORMS,ONCE),ORAL
     Route: 048
     Dates: start: 20110510, end: 20110510
  2. ESCITALOPRAM [Suspect]
     Indication: PSYCHOTIC DISORDER
     Dosage: ORAL
     Route: 048
  3. TEMESTA (LORAZEPAM) (LORAZEPAM) [Concomitant]
  4. SOLIAN (AMISULPRIDE) (AMISULPRIDE) [Concomitant]

REACTIONS (5)
  - CONTINUOUS HAEMODIAFILTRATION [None]
  - INTENTIONAL OVERDOSE [None]
  - SUICIDE ATTEMPT [None]
  - VOMITING [None]
  - METABOLIC ACIDOSIS [None]
